FAERS Safety Report 10068039 (Version 1)
Quarter: 2014Q2

REPORT INFORMATION
  Report Type: Spontaneous
  Country: CA (occurrence: CA)
  Receive Date: 20140409
  Receipt Date: 20140409
  Transmission Date: 20141212
  Serious: Yes (Other)
  Sender: FDA-Public Use
  Company Number: CA-JNJFOC-20140404395

PATIENT
  Sex: Male

DRUGS (4)
  1. INFLIXIMAB, RECOMBINANT [Suspect]
     Indication: POLYARTERITIS NODOSA
     Route: 042
  2. CYCLOPHOSPHAMIDE [Suspect]
     Indication: POLYARTERITIS NODOSA
     Route: 065
  3. METHOTREXATE [Suspect]
     Indication: POLYARTERITIS NODOSA
     Route: 065
  4. AZATHIOPRINE [Suspect]
     Indication: POLYARTERITIS NODOSA
     Route: 065

REACTIONS (3)
  - Renal cancer [Unknown]
  - Lymphoproliferative disorder [Unknown]
  - Off label use [Unknown]
